FAERS Safety Report 11697051 (Version 1)
Quarter: 2015Q4

REPORT INFORMATION
  Report Type: Spontaneous
  Country: CA (occurrence: CA)
  Receive Date: 20151104
  Receipt Date: 20151104
  Transmission Date: 20160304
  Serious: Yes (Other)
  Sender: FDA-Public Use
  Company Number: CA-TEVA-604991ACC

PATIENT
  Age: 44 Year
  Sex: Male
  Weight: 83.99 kg

DRUGS (2)
  1. NOVO-CHLOROQUINE TAB 250 MG [Suspect]
     Active Substance: CHLOROQUINE PHOSPHATE
     Indication: MALARIA
     Route: 065
  2. NOVO-CHLOROQUINE TAB 250 MG [Suspect]
     Active Substance: CHLOROQUINE PHOSPHATE
     Route: 065

REACTIONS (3)
  - Musculoskeletal discomfort [Recovering/Resolving]
  - Neuropathy peripheral [Recovering/Resolving]
  - Feeling hot [Recovering/Resolving]
